FAERS Safety Report 7575354-8 (Version None)
Quarter: 2011Q2

REPORT INFORMATION
  Report Type: 
  Country: None (occurrence: None)
  Receive Date: 20110627
  Receipt Date: 20110615
  Transmission Date: 20111010
  Serious: Yes (Other)
  Sender: FDA-Public Use
  Company Number: US-GILEAD-E2B_00001352

PATIENT
  Sex: Female
  Weight: 62.5 kg

DRUGS (5)
  1. FUROSEMIDE [Concomitant]
     Indication: RIGHT VENTRICULAR FAILURE
     Dosage: 120MG TWICE PER DAY
     Route: 048
  2. GABAPENTIN [Concomitant]
     Indication: NEUROPATHY PERIPHERAL
     Dosage: 200MG TWICE PER DAY
     Route: 048
     Dates: start: 20110414
  3. AMBRISENTAN [Suspect]
     Indication: PULMONARY ARTERIAL HYPERTENSION
     Dosage: 5MG PER DAY
     Route: 048
     Dates: start: 20110420
  4. TADALAFIL [Suspect]
     Indication: PULMONARY ARTERIAL HYPERTENSION
     Dosage: 40MG PER DAY
     Route: 048
     Dates: start: 20110420
  5. POTASSIUM [Concomitant]
     Indication: PROPHYLAXIS
     Dosage: 20MEQ TWICE PER DAY
     Route: 048
     Dates: start: 20110507

REACTIONS (2)
  - HEPATITIS B ANTIBODY POSITIVE [None]
  - HEPATITIS C [None]
